FAERS Safety Report 6471248-X (Version None)
Quarter: 2009Q4

REPORT INFORMATION
  Report Type: 
  Country: None (occurrence: None)
  Receive Date: 20091203
  Receipt Date: 20080917
  Transmission Date: 20100525
  Serious: Yes (Hospitalization, Other)
  Sender: FDA-Public Use
  Company Number: GB-ELI_LILLY_AND_COMPANY-GB200802005485

PATIENT
  Age: 60 Year
  Sex: Female

DRUGS (4)
  1. PROZAC [Suspect]
     Dosage: UNK, UNKNOWN
     Route: 065
  2. METHYLENE BLUE [Concomitant]
     Indication: PARATHYROIDECTOMY
     Dosage: 7.5 MG/KG, UNKNOWN
     Route: 042
  3. BECLOMETASONE [Concomitant]
     Dosage: UNK, UNKNOWN
     Route: 045
  4. ACETAMINOPHEN WITH PROPOXYPHENE HCL TAB [Concomitant]
     Dosage: UNK, UNKNOWN
     Route: 065

REACTIONS (7)
  - CHROMATURIA [None]
  - DRUG INTERACTION [None]
  - HAEMOGLOBIN DECREASED [None]
  - RESPIRATORY ACIDOSIS [None]
  - SEROTONIN SYNDROME [None]
  - SKIN DISCOLOURATION [None]
  - VOMITING [None]
